FAERS Safety Report 26053491 (Version 1)
Quarter: 2025Q4

REPORT INFORMATION
  Report Type: Spontaneous
  Country: US (occurrence: None)
  Receive Date: 20251116
  Receipt Date: 20251116
  Transmission Date: 20260117
  Serious: Yes (Disabling)
  Sender: FDA-CTU
  Company Number: None

PATIENT
  Age: 30 Year
  Weight: 65.25 kg

DRUGS (1)
  1. METRONIDAZOLE [Suspect]
     Active Substance: METRONIDAZOLE

REACTIONS (2)
  - Libido decreased [None]
  - Libido decreased [None]

NARRATIVE: CASE EVENT DATE: 20251116
